FAERS Safety Report 5934891-X (Version None)
Quarter: 2008Q4

REPORT INFORMATION
  Report Type: 
  Country: None (occurrence: None)
  Receive Date: 20081027
  Receipt Date: 20081017
  Transmission Date: 20090506
  Serious: Yes (Other)
  Sender: FDA-Public Use
  Company Number: 2008BI028075

PATIENT
  Age: 41 Year
  Sex: Female
  Weight: 113.3993 kg

DRUGS (3)
  1. TYSABRI [Suspect]
     Indication: MULTIPLE SCLEROSIS
     Dosage: 300 MG;QM;IV
     Route: 042
     Dates: start: 20070701
  2. KEPPRA [Concomitant]
  3. PREV MEDS [Concomitant]

REACTIONS (1)
  - CONVULSION [None]
